FAERS Safety Report 7190698-X (Version None)
Quarter: 2010Q4

REPORT INFORMATION
  Report Type: 
  Country: None (occurrence: None)
  Receive Date: 20101223
  Receipt Date: 20101216
  Transmission Date: 20110411
  Serious: Yes (Other)
  Sender: FDA-Public Use
  Company Number: US-US-EMD SERONO, INC.-7032542

PATIENT
  Sex: Female

DRUGS (2)
  1. REBIF [Suspect]
     Indication: MULTIPLE SCLEROSIS
     Route: 058
     Dates: start: 20040301
  2. UNSPECIFIED MEDICATION [Concomitant]

REACTIONS (4)
  - GLAUCOMA [None]
  - MIGRAINE [None]
  - POST PROCEDURAL HAEMORRHAGE [None]
  - SCAR [None]
